FAERS Safety Report 6435132-X (Version None)
Quarter: 2009Q4

REPORT INFORMATION
  Report Type: 
  Country: None (occurrence: None)
  Receive Date: 20091110
  Receipt Date: 20091105
  Transmission Date: 20100525
  Serious: Yes (Death)
  Sender: FDA-Public Use
  Company Number: US-GILEAD-2009-0025265

PATIENT
  Age: 42 Year
  Sex: Male

DRUGS (11)
  1. TRUVADA [Suspect]
     Indication: HIV INFECTION
     Route: 048
     Dates: start: 20090623, end: 20091009
  2. STOCRIN [Suspect]
     Indication: HIV INFECTION
     Route: 048
     Dates: start: 20090623, end: 20091009
  3. ZIDOVUDINE [Concomitant]
     Indication: HIV INFECTION
  4. LAMIVUDINE [Concomitant]
     Indication: HIV INFECTION
  5. LOPINAVIR [Concomitant]
     Indication: HIV INFECTION
  6. TRIMETHROPRINE-SULFAMETHOXAZOLE [Concomitant]
  7. CLINDAMYCIN [Concomitant]
  8. ISONIAZID [Concomitant]
     Indication: TUBERCULOSIS
  9. RIFAMPICIN [Concomitant]
     Indication: TUBERCULOSIS
  10. PYRAZINAMIDE [Concomitant]
     Indication: TUBERCULOSIS
  11. ETHAMBUTOL HYDROCHLORIDE [Concomitant]
     Indication: TUBERCULOSIS

REACTIONS (1)
  - INTRACRANIAL PRESSURE INCREASED [None]
